FAERS Safety Report 5672298-3 (Version None)
Quarter: 2008Q1

REPORT INFORMATION
  Report Type: 
  Country: None (occurrence: None)
  Receive Date: 20080319
  Receipt Date: 20080314
  Transmission Date: 20080703
  Serious: Yes (Death, Hospitalization, Other)
  Sender: FDA-Public Use
  Company Number: PHFR2008GB00688

PATIENT
  Age: 66 Year
  Sex: Male

DRUGS (1)
  1. CLOZARIL [Suspect]
     Indication: SCHIZOPHRENIA
     Dosage: UNK, UNK
     Route: 048
     Dates: start: 20050920, end: 20080208

REACTIONS (8)
  - DEATH [None]
  - GASTROINTESTINAL TUBE INSERTION [None]
  - MALAISE [None]
  - NEUTROPHIL COUNT INCREASED [None]
  - PLATELET COUNT INCREASED [None]
  - RESPIRATORY TRACT INFECTION [None]
  - SEPSIS [None]
  - WHITE BLOOD CELL COUNT INCREASED [None]
